FAERS Safety Report 21986467 (Version 1)
Quarter: 2023Q1

REPORT INFORMATION
  Report Type: Spontaneous
  Country: MX (occurrence: MX)
  Receive Date: 20230213
  Receipt Date: 20230213
  Transmission Date: 20230417
  Serious: Yes (Death, Other)
  Sender: FDA-Public Use
  Company Number: MX-INSUD PHARMA-2302MX00753

PATIENT

DRUGS (6)
  1. OMEPRAZOLE [Suspect]
     Active Substance: OMEPRAZOLE
     Indication: Product used for unknown indication
     Dosage: 20 MILLIGRAM
     Route: 042
  2. CRATAEGUS EXTRACT [Suspect]
     Active Substance: HAWTHORN LEAF WITH FLOWER
     Indication: Product used for unknown indication
     Dosage: INGESTED UNDETERMINED NUMBER OF PILLS
     Route: 048
  3. AMITRIPTYLINE [Suspect]
     Active Substance: AMITRIPTYLINE
     Indication: Depression
     Dosage: LONG-TERM TREATMENT
     Route: 065
  4. CLOZAPINE [Suspect]
     Active Substance: CLOZAPINE
     Indication: Depression
     Dosage: LONG-TERM TREATMENT
     Route: 065
  5. ONDANSETRON [Suspect]
     Active Substance: ONDANSETRON
     Indication: Nausea
     Dosage: 4 MILLIGRAM
     Route: 042
  6. ALPRAZOLAM [Concomitant]
     Active Substance: ALPRAZOLAM
     Indication: Depression

REACTIONS (10)
  - Cardiac arrest [Fatal]
  - Electrocardiogram QT prolonged [Fatal]
  - Ventricular fibrillation [Unknown]
  - Depressed level of consciousness [Unknown]
  - Sinus arrest [Unknown]
  - Pallor [Unknown]
  - Hyperhidrosis [Unknown]
  - Nausea [Unknown]
  - Hypotension [Unknown]
  - Bradycardia [Unknown]
